FAERS Safety Report 5161364-7 (Version None)
Quarter: 2006Q4

REPORT INFORMATION
  Report Type: 
  Country: None (occurrence: None)
  Receive Date: 20061130
  Receipt Date: 20061103
  Transmission Date: 20070319
  Serious: Yes (Hospitalization)
  Sender: FDA-Public Use
  Company Number: CH-ROCHE-470042

PATIENT
  Age: 56 Year
  Sex: Male
  Weight: 135 kg

DRUGS (3)
  1. XENICAL [Suspect]
     Indication: OBESITY
     Route: 048
     Dates: start: 20040615, end: 20040615
  2. XENICAL [Suspect]
     Route: 048
     Dates: start: 20061121
  3. METFORMIN [Concomitant]
     Route: 048

REACTIONS (3)
  - CALCULUS URINARY [None]
  - LYMPHADENOPATHY [None]
  - LYMPHADENOPATHY MEDIASTINAL [None]
